FAERS Safety Report 21930889 (Version 3)
Quarter: 2025Q1

REPORT INFORMATION
  Report Type: Report from Study
  Country: US (occurrence: US)
  Receive Date: 20230131
  Receipt Date: 20250114
  Transmission Date: 20250409
  Serious: Yes (Hospitalization, Other)
  Sender: CSL BEHRING
  Company Number: US-BEH-2023154656

PATIENT
  Age: 35 Year
  Sex: Female

DRUGS (4)
  1. HAEGARDA [Suspect]
     Active Substance: HUMAN C1-ESTERASE INHIBITOR
     Indication: Hereditary angioedema
     Dosage: 3000 IU/KG, BIW
     Route: 058
  2. HAEGARDA [Suspect]
     Active Substance: HUMAN C1-ESTERASE INHIBITOR
     Indication: Prophylaxis
  3. HAEGARDA [Suspect]
     Active Substance: HUMAN C1-ESTERASE INHIBITOR
     Dosage: 5700 INTERNATIONAL UNIT, BIW
     Route: 058
     Dates: start: 202110
  4. HAEGARDA [Suspect]
     Active Substance: HUMAN C1-ESTERASE INHIBITOR
     Dosage: 3000.0 IU/KG, BIW
     Route: 058

REACTIONS (9)
  - Hereditary angioedema [Unknown]
  - Headache [Unknown]
  - Product dose omission issue [Unknown]
  - Insurance issue [Unknown]
  - Product dose omission in error [Unknown]
  - Hereditary angioedema [Recovered/Resolved]
  - Hereditary angioedema [Recovering/Resolving]
  - Hereditary angioedema [Recovering/Resolving]
  - COVID-19 [Recovering/Resolving]

NARRATIVE: CASE EVENT DATE: 20230724
